FAERS Safety Report 9263608 (Version 1)
Quarter: 2013Q2

REPORT INFORMATION
  Report Type: Spontaneous
  Country: US (occurrence: US)
  Receive Date: 20130430
  Receipt Date: 20130430
  Transmission Date: 20140414
  Serious: No
  Sender: FDA-Public Use
  Company Number: US-PFIZER INC-2013129169

PATIENT
  Age: 41 Year
  Sex: Male
  Weight: 101 kg

DRUGS (5)
  1. ARTHROTEC [Suspect]
     Indication: ARTHRITIS
     Dosage: UNK , 2X/DAY
  2. ARTHROTEC [Suspect]
     Indication: OSTEOARTHRITIS
  3. NEURONTIN [Suspect]
     Indication: NEUROPATHY PERIPHERAL
     Dosage: 600 MG, 3X/DAY
  4. NITROSTAT [Suspect]
     Indication: TACHYCARDIA
     Dosage: UNK, AS NEEDED
  5. CRESTOR [Concomitant]
     Indication: BLOOD CHOLESTEROL ABNORMAL
     Dosage: 40 MG, 1X/DAY

REACTIONS (1)
  - Chronic obstructive pulmonary disease [Unknown]
